FAERS Safety Report 8419116 (Version 2)
Quarter: 2012Q4

REPORT INFORMATION
  Report Type: 
  Country: JP (occurrence: JP)
  Receive Date: 20120221
  Receipt Date: 20121005
  Transmission Date: 20130627
  Serious: Yes (Other)
  Sender: FDA-Public Use
  Company Number: JP-TEVA-322999USA

PATIENT
  Age: 49 Year
  Sex: Male

DRUGS (5)
  1. TREANDA [Suspect]
     Indication: MANTLE CELL LYMPHOMA
     Dosage: 90 mh/m2
     Route: 042
     Dates: start: 20111115, end: 20111116
  2. TREANDA [Suspect]
     Dosage: 90 mg/m2
     Route: 042
     Dates: start: 20111220, end: 20111221
  3. TREANDA [Suspect]
     Dosage: 90 mg/m2
     Route: 042
     Dates: start: 20120126, end: 20120127
  4. TREANDA [Suspect]
     Dosage: 90 mg/m2
     Route: 042
     Dates: start: 20120423, end: 20120424
  5. RITUXIMAB [Concomitant]
     Dosage: 375 mg/m2/day
     Dates: start: 20111115

REACTIONS (1)
  - Vasculitis [Recovered/Resolved]
